FAERS Safety Report 7754220-9 (Version None)
Quarter: 2011Q3

REPORT INFORMATION
  Report Type: 
  Country: None (occurrence: None)
  Receive Date: 20110913
  Receipt Date: 20110826
  Transmission Date: 20111222
  Serious: Yes (Other)
  Sender: FDA-Public Use
  Company Number: 019279

PATIENT
  Age: 80 Year
  Sex: Female

DRUGS (1)
  1. MACUGEN [Suspect]
     Indication: AGE-RELATED MACULAR DEGENERATION
     Dosage: INTRAOCULAR
     Route: 031
     Dates: start: 20110809

REACTIONS (4)
  - INTRAOCULAR PRESSURE INCREASED [None]
  - ACCIDENTAL OVERDOSE [None]
  - PRODUCT PACKAGING QUANTITY ISSUE [None]
  - RETINAL ARTERY OCCLUSION [None]
